FAERS Safety Report 23329798 (Version 2)
Quarter: 2023Q4

REPORT INFORMATION
  Report Type: Spontaneous
  Country: SE (occurrence: SE)
  Receive Date: 20231222
  Receipt Date: 20231229
  Transmission Date: 20240109
  Serious: Yes (Life-Threatening, Hospitalization, Other)
  Sender: FDA-Public Use
  Company Number: SE-MACLEODS PHARMACEUTICALS US LTD-MAC2023044928

PATIENT

DRUGS (20)
  1. OLANZAPINE [Interacting]
     Active Substance: OLANZAPINE
     Indication: Generalised anxiety disorder
     Dosage: 2.5 MILLIGRAM, BID (AT 25 GESTATIONAL WEEK + 5 DAYS)
     Route: 065
  2. OLANZAPINE [Interacting]
     Active Substance: OLANZAPINE
     Indication: Suicidal ideation
     Dosage: 7.5 MILLIGRAM, QD
     Route: 065
  3. OLANZAPINE [Interacting]
     Active Substance: OLANZAPINE
     Dosage: 5 MILLIGRAM, BID (AT 28 GESTATIONAL WEEK)
     Route: 065
  4. OLANZAPINE [Interacting]
     Active Substance: OLANZAPINE
     Dosage: UNK, SUBSEQUENT GRADUAL INCREASE
     Route: 065
  5. OLANZAPINE [Interacting]
     Active Substance: OLANZAPINE
     Dosage: 5 MILLIGRAM, QD
     Route: 065
  6. VENLAFAXINE [Interacting]
     Active Substance: VENLAFAXINE HYDROCHLORIDE
     Indication: Depression
     Dosage: 225 MILLIGRAM, QD
     Route: 065
  7. VENLAFAXINE [Interacting]
     Active Substance: VENLAFAXINE HYDROCHLORIDE
     Dosage: 187.5 MILLIGRAM, QD (AT 24 GESTATIONAL WEEK)
     Route: 065
  8. VENLAFAXINE [Interacting]
     Active Substance: VENLAFAXINE HYDROCHLORIDE
     Dosage: 225 MILLIGRAM, QD (AT 24 GESTATIONAL WEEK + 6 DAYS)
     Route: 065
  9. VENLAFAXINE [Interacting]
     Active Substance: VENLAFAXINE HYDROCHLORIDE
     Dosage: UNK, TAPERING
     Route: 065
  10. LAMOTRIGINE [Concomitant]
     Active Substance: LAMOTRIGINE
     Indication: Borderline personality disorder
     Dosage: 150 MILLIGRAM, QD
     Route: 065
  11. LAMOTRIGINE [Concomitant]
     Active Substance: LAMOTRIGINE
     Indication: Depression
     Dosage: 25 MILLIGRAM, QD (AT 24 GESTATIONAL WEEK)
     Route: 065
  12. LAMOTRIGINE [Concomitant]
     Active Substance: LAMOTRIGINE
     Dosage: 150 MILLIGRAM, QD (AT 25 GESTATIONAL WEEK + 5 DAYS)
     Route: 065
  13. LAMOTRIGINE [Concomitant]
     Active Substance: LAMOTRIGINE
     Dosage: 25 MILLIGRAM, QD (AT 24 GESTATIONAL WEEK + 6 DAYS)
     Route: 065
  14. LAMOTRIGINE [Concomitant]
     Active Substance: LAMOTRIGINE
     Dosage: 50 MILLIGRAM, QD, GRADUAL INCREASE OVER 2 WEEKS
     Route: 065
  15. LAMOTRIGINE [Concomitant]
     Active Substance: LAMOTRIGINE
     Dosage: UNK, TAPERING
     Route: 065
  16. LAMOTRIGINE [Concomitant]
     Active Substance: LAMOTRIGINE
     Dosage: UNK, GRADUAL INCREASE
     Route: 065
  17. ZOLPIDEM [Concomitant]
     Active Substance: ZOLPIDEM TARTRATE
     Indication: Sleep disorder
     Dosage: 10 MILLIGRAM, QD, NIGHTLY REGIMEN (AT 24 GESTATIONAL WEEK + 6 DAYS)
     Route: 065
  18. OXAZEPAM [Concomitant]
     Active Substance: OXAZEPAM
     Indication: Generalised anxiety disorder
     Dosage: 10 MILLIGRAM, PRN (AT 24 GESTATIONAL WEEK + 6 DAYS)
     Route: 065
  19. PROMETHAZINE [Concomitant]
     Active Substance: PROMETHAZINE HYDROCHLORIDE
     Indication: Generalised anxiety disorder
     Dosage: 25 MILLIGRAM, PRN (AT 24 GESTATIONAL WEEK + 6 DAYS)
     Route: 065
  20. ONDANSETRON [Concomitant]
     Active Substance: ONDANSETRON
     Indication: Nausea
     Dosage: 4 MILLIGRAM, PRN (AT 24 GESTATIONAL WEEK + 6 DAYS)
     Route: 065

REACTIONS (11)
  - Pre-eclampsia [Recovering/Resolving]
  - Fluid retention [Recovered/Resolved]
  - Proteinuria [Recovering/Resolving]
  - N-terminal prohormone brain natriuretic peptide increased [Recovering/Resolving]
  - Hypertension [Recovered/Resolved]
  - Weight increased [Recovered/Resolved]
  - Hypoalbuminaemia [Recovering/Resolving]
  - Pleural effusion [Unknown]
  - Oedema peripheral [Recovered/Resolved]
  - Drug interaction [Recovering/Resolving]
  - Maternal exposure during pregnancy [Unknown]
